FAERS Safety Report 17874706 (Version 1)
Quarter: 2020Q2

REPORT INFORMATION
  Report Type: Report from Study
  Country: None (occurrence: US)
  Receive Date: 20200609
  Receipt Date: 20200609
  Transmission Date: 20200714
  Serious: Yes (Other)
  Sender: FDA-Public Use
  Company Number: US-BIOVITRUM-2019US3589

PATIENT
  Age: 55 Year
  Sex: Female

DRUGS (1)
  1. KINERET [Suspect]
     Active Substance: ANAKINRA
     Indication: STILL^S DISEASE
     Route: 058
     Dates: start: 20190408

REACTIONS (12)
  - Pain [Unknown]
  - Acute sinusitis [Unknown]
  - Off label use [Unknown]
  - Nasopharyngitis [Unknown]
  - Arthralgia [Unknown]
  - Injection site pain [Unknown]
  - Pneumonia [Unknown]
  - Productive cough [Unknown]
  - Sinus congestion [Unknown]
  - Joint range of motion decreased [Unknown]
  - Fibromyalgia [Unknown]
  - Tenderness [Unknown]

NARRATIVE: CASE EVENT DATE: 20190408
